FAERS Safety Report 4297008-6 (Version None)
Quarter: 2004Q1

REPORT INFORMATION
  Report Type: 
  Country: None (occurrence: None)
  Receive Date: 20040217
  Receipt Date: 20040205
  Transmission Date: 20041129
  Serious: Yes (Other)
  Sender: FDA-Public Use
  Company Number: US-BRISTOL-MYERS SQUIBB COMPANY-12502720

PATIENT
  Sex: Female

DRUGS (6)
  1. SERZONE [Suspect]
     Route: 048
     Dates: start: 19980101
  2. RITALIN [Concomitant]
  3. KLONOPIN [Concomitant]
  4. PAXIL [Concomitant]
  5. EVISTA [Concomitant]
  6. WELLBUTRIN [Concomitant]

REACTIONS (4)
  - CHOLELITHIASIS [None]
  - PRURITUS [None]
  - SKIN LESION [None]
  - URTICARIA CHRONIC [None]
